FAERS Safety Report 5766840-1 (Version None)
Quarter: 2008Q2

REPORT INFORMATION
  Report Type: 
  Country: None (occurrence: None)
  Receive Date: 20080609
  Receipt Date: 20080428
  Transmission Date: 20081010
  Serious: No
  Sender: FDA-Public Use
  Company Number: 002#1#2008-00320

PATIENT
  Age: 78 Year
  Sex: Male

DRUGS (5)
  1. NEUPRO [Suspect]
     Indication: PARKINSON'S DISEASE
     Dosage: 4MG/24H,1 IN 1 D,TRANSDERMAL
     Route: 062
     Dates: start: 20070828, end: 20080402
  2. COMTAN [Concomitant]
  3. SINEMET [Concomitant]
  4. SEROQUEL [Concomitant]
  5. MIRAPEX [Concomitant]

REACTIONS (2)
  - HYPOTENSION [None]
  - PARKINSON'S DISEASE [None]
